FAERS Safety Report 9717400 (Version 1)
Quarter: 2013Q4

REPORT INFORMATION
  Report Type: Spontaneous
  Country: US (occurrence: US)
  Receive Date: 20131127
  Receipt Date: 20131127
  Transmission Date: 20140711
  Serious: Yes (Hospitalization)
  Sender: FDA-Public Use
  Company Number: US-GILEAD-2008-0019577

PATIENT
  Sex: Male
  Weight: 95.25 kg

DRUGS (15)
  1. LETAIRIS [Suspect]
     Indication: PULMONARY ARTERIAL HYPERTENSION
     Route: 048
     Dates: start: 20081210
  2. ALBUTEROL INHALER [Concomitant]
  3. MAXAIR AUTOHALER [Concomitant]
  4. SYMBICORT INHALER [Concomitant]
  5. SOLU-MEDROL [Concomitant]
  6. LASIX [Concomitant]
  7. METOPROLOL [Concomitant]
  8. NORVASC [Concomitant]
  9. LISINOPRIL [Concomitant]
  10. POTASSIUM [Concomitant]
  11. FLOMAX [Concomitant]
  12. AVELOX [Concomitant]
  13. ASPIRIN [Concomitant]
  14. NEXIUM [Concomitant]
  15. AMBIEN [Concomitant]

REACTIONS (1)
  - Dyspnoea [None]
